FAERS Safety Report 17243330 (Version 1)
Quarter: 2020Q1

REPORT INFORMATION
  Report Type: Spontaneous
  Country: DE (occurrence: DE)
  Receive Date: 20200107
  Receipt Date: 20200107
  Transmission Date: 20200409
  Serious: Yes (Other)
  Sender: FDA-Public Use
  Company Number: DE-UCBSA-2019056329

PATIENT
  Age: 64 Year
  Sex: Male

DRUGS (27)
  1. VIMPAT [Suspect]
     Active Substance: LACOSAMIDE
     Indication: OFF LABEL USE
  2. LAMOTRIGINE. [Suspect]
     Active Substance: LAMOTRIGINE
     Indication: AUTOMATISM EPILEPTIC
  3. OLANZAPINE. [Suspect]
     Active Substance: OLANZAPINE
     Indication: PRODUCT USED FOR UNKNOWN INDICATION
     Dosage: UNKNOWN DOSE
  4. OXCARBAZEPINE. [Suspect]
     Active Substance: OXCARBAZEPINE
     Indication: AURA
     Dosage: UNKNOWN DOSE
  5. OXCARBAZEPINE. [Suspect]
     Active Substance: OXCARBAZEPINE
     Indication: AUTOMATISM EPILEPTIC
  6. ZONISAMIDE. [Suspect]
     Active Substance: ZONISAMIDE
     Indication: GENERALISED TONIC-CLONIC SEIZURE
  7. LEVETIRACETAM. [Suspect]
     Active Substance: LEVETIRACETAM
     Indication: AURA
     Dosage: 3000 MILLIGRAM
  8. LEVETIRACETAM. [Suspect]
     Active Substance: LEVETIRACETAM
     Indication: OFF LABEL USE
  9. VIMPAT [Suspect]
     Active Substance: LACOSAMIDE
     Indication: AURA
  10. GABAPENTIN. [Suspect]
     Active Substance: GABAPENTIN
     Indication: GENERALISED TONIC-CLONIC SEIZURE
     Dosage: UNKNOWN DOSE
  11. VALPROATE [Suspect]
     Active Substance: VALPROIC ACID
     Indication: AUTOMATISM EPILEPTIC
     Dosage: UNKNOWN DOSE
  12. LEVETIRACETAM. [Suspect]
     Active Substance: LEVETIRACETAM
     Indication: GENERALISED TONIC-CLONIC SEIZURE
  13. LAMOTRIGINE. [Suspect]
     Active Substance: LAMOTRIGINE
     Indication: GENERALISED TONIC-CLONIC SEIZURE
     Dosage: 900 MILLIGRAM
  14. VIMPAT [Suspect]
     Active Substance: LACOSAMIDE
     Indication: GENERALISED TONIC-CLONIC SEIZURE
  15. PRIMIDONE. [Suspect]
     Active Substance: PRIMIDONE
     Indication: AURA
     Dosage: UNKNOWN DOSE
  16. PRIMIDONE. [Suspect]
     Active Substance: PRIMIDONE
     Indication: GENERALISED TONIC-CLONIC SEIZURE
  17. VALPROATE [Suspect]
     Active Substance: VALPROIC ACID
     Indication: GENERALISED TONIC-CLONIC SEIZURE
  18. ZONISAMIDE. [Suspect]
     Active Substance: ZONISAMIDE
     Indication: AUTOMATISM EPILEPTIC
  19. GABAPENTIN. [Suspect]
     Active Substance: GABAPENTIN
     Indication: AUTOMATISM EPILEPTIC
  20. GABAPENTIN. [Suspect]
     Active Substance: GABAPENTIN
     Indication: AURA
  21. LEVETIRACETAM. [Suspect]
     Active Substance: LEVETIRACETAM
     Indication: AUTOMATISM EPILEPTIC
  22. VIMPAT [Suspect]
     Active Substance: LACOSAMIDE
     Indication: AUTOMATISM EPILEPTIC
  23. LAMOTRIGINE. [Suspect]
     Active Substance: LAMOTRIGINE
     Indication: AURA
  24. OXCARBAZEPINE. [Suspect]
     Active Substance: OXCARBAZEPINE
     Indication: GENERALISED TONIC-CLONIC SEIZURE
  25. PRIMIDONE. [Suspect]
     Active Substance: PRIMIDONE
     Indication: AUTOMATISM EPILEPTIC
  26. VALPROATE [Suspect]
     Active Substance: VALPROIC ACID
     Indication: AURA
  27. ZONISAMIDE. [Suspect]
     Active Substance: ZONISAMIDE
     Indication: AURA
     Dosage: UNKNOWN DOSE

REACTIONS (5)
  - Psychotic symptom [Recovered/Resolved]
  - Multiple-drug resistance [Unknown]
  - Depressive symptom [Recovered/Resolved]
  - Delusion [Recovered/Resolved]
  - Off label use [Unknown]
